FAERS Safety Report 7361143-6 (Version None)
Quarter: 2011Q1

REPORT INFORMATION
  Report Type: 
  Country: None (occurrence: None)
  Receive Date: 20110318
  Receipt Date: 20110311
  Transmission Date: 20110831
  Serious: Yes (Other)
  Sender: FDA-Public Use
  Company Number: GB-ELI_LILLY_AND_COMPANY-GB201103004100

PATIENT
  Sex: Male

DRUGS (2)
  1. CIALIS [Suspect]
     Dosage: 1 D/F, UNK
  2. VIAGRA [Concomitant]
     Dosage: 1 D/F, UNK

REACTIONS (1)
  - SEXUAL ABUSE [None]
